FAERS Safety Report 5392791-0 (Version None)
Quarter: 2007Q3

REPORT INFORMATION
  Report Type: 
  Country: None (occurrence: None)
  Receive Date: 20070718
  Receipt Date: 20070703
  Transmission Date: 20080115
  Serious: Yes (Hospitalization)
  Sender: FDA-Public Use
  Company Number: 070702-0000646

PATIENT

DRUGS (1)
  1. INDOCIN [Suspect]
     Indication: GOUT
     Dosage: 50 MG;TID;

REACTIONS (2)
  - ACUTE ABDOMEN [None]
  - VERTIGO [None]
